FAERS Safety Report 25858382 (Version 1)
Quarter: 2025Q3

REPORT INFORMATION
  Report Type: Spontaneous
  Country: GB (occurrence: None)
  Receive Date: 20250929
  Receipt Date: 20250929
  Transmission Date: 20251020
  Serious: Yes (Other)
  Sender: ENDO
  Company Number: GB-ENDO USA, INC.-2025-001978

PATIENT
  Sex: Male

DRUGS (1)
  1. AVEED [Suspect]
     Active Substance: TESTOSTERONE UNDECANOATE
     Indication: Hypogonadism male
     Route: 065

REACTIONS (2)
  - Hyponatraemia [Recovering/Resolving]
  - Oedema peripheral [Recovering/Resolving]
